FAERS Safety Report 11932060 (Version 2)
Quarter: 2016Q4

REPORT INFORMATION
  Report Type: Spontaneous
  Country: US (occurrence: US)
  Receive Date: 20160120
  Receipt Date: 20161128
  Transmission Date: 20170206
  Serious: No
  Sender: FDA-Public Use
  Company Number: US-ASTRAZENECA-2016SE03346

PATIENT
  Sex: Female

DRUGS (1)
  1. PRILOSEC OTC [Suspect]
     Active Substance: OMEPRAZOLE MAGNESIUM
     Dosage: 2 TABLET, 1 ONLY-BEFORE BREAKFAST
     Route: 048
     Dates: start: 20160108, end: 20160108

REACTIONS (4)
  - Prescribed overdose [Unknown]
  - Abdominal distension [Recovering/Resolving]
  - Diarrhoea [Not Recovered/Not Resolved]
  - Gastric dilatation [Recovering/Resolving]

NARRATIVE: CASE EVENT DATE: 20160108
